FAERS Safety Report 5875886-4 (Version None)
Quarter: 2008Q3

REPORT INFORMATION
  Report Type: 
  Country: None (occurrence: None)
  Receive Date: 20080905
  Receipt Date: 20080829
  Transmission Date: 20090109
  Serious: Yes (Hospitalization)
  Sender: FDA-Public Use
  Company Number: 2008SP016394

PATIENT
  Age: 65 Year
  Sex: Female
  Weight: 74 kg

DRUGS (8)
  1. VIRAFERONPEG [Suspect]
     Indication: HEPATITIS C
     Dosage: 45 MCG;WE;SC;  40 MCG;QW; 35 MCG;WE;  30 MCG; QW;
     Route: 058
     Dates: start: 20061212, end: 20070313
  2. VIRAFERONPEG [Suspect]
     Indication: HEPATITIS C
     Dosage: 45 MCG;WE;SC;  40 MCG;QW; 35 MCG;WE;  30 MCG; QW;
     Route: 058
     Dates: start: 20070314, end: 20070904
  3. VIRAFERONPEG [Suspect]
     Indication: HEPATITIS C
     Dosage: 45 MCG;WE;SC;  40 MCG;QW; 35 MCG;WE;  30 MCG; QW;
     Route: 058
     Dates: start: 20070905, end: 20080313
  4. VIRAFERONPEG [Suspect]
     Indication: HEPATITIS C
     Dosage: 45 MCG;WE;SC;  40 MCG;QW; 35 MCG;WE;  30 MCG; QW;
     Route: 058
     Dates: start: 20080314, end: 20080822
  5. BLINDED PEGINTERFERON ALFA-2B (S-P) [Suspect]
     Indication: HEPATITIS C
     Dosage: 1200 MG; QD; PO;  1000 MG; QD; PO;  600 MG; QD; PO;  400 MG; QD; PO
     Route: 048
     Dates: start: 20061212, end: 20070313
  6. BLINDED PEGINTERFERON ALFA-2B (S-P) [Suspect]
     Indication: HEPATITIS C
     Dosage: 1200 MG; QD; PO;  1000 MG; QD; PO;  600 MG; QD; PO;  400 MG; QD; PO
     Route: 048
     Dates: start: 20070314, end: 20080313
  7. BLINDED PEGINTERFERON ALFA-2B (S-P) [Suspect]
     Indication: HEPATITIS C
     Dosage: 1200 MG; QD; PO;  1000 MG; QD; PO;  600 MG; QD; PO;  400 MG; QD; PO
     Route: 048
     Dates: start: 20080314, end: 20080808
  8. BLINDED PEGINTERFERON ALFA-2B (S-P) [Suspect]
     Indication: HEPATITIS C
     Dosage: 1200 MG; QD; PO;  1000 MG; QD; PO;  600 MG; QD; PO;  400 MG; QD; PO
     Route: 048
     Dates: start: 20080809, end: 20080822

REACTIONS (4)
  - ASTHENIA [None]
  - COUGH [None]
  - PULMONARY EMBOLISM [None]
  - WEIGHT DECREASED [None]
